APPROVED DRUG PRODUCT: OXACILLIN SODIUM
Active Ingredient: OXACILLIN SODIUM
Strength: EQ 1GM BASE/VIAL
Dosage Form/Route: INJECTABLE;INJECTION
Application: A203950 | Product #001
Applicant: HOSPIRA INC
Approved: Dec 11, 2015 | RLD: No | RS: No | Type: DISCN